FAERS Safety Report 18595681 (Version 2)
Quarter: 2021Q4

REPORT INFORMATION
  Report Type: Spontaneous
  Country: US (occurrence: US)
  Receive Date: 20201209
  Receipt Date: 20211020
  Transmission Date: 20220303
  Serious: No
  Sender: FDA-Public Use
  Company Number: US-PFIZER INC-2020481772

PATIENT
  Age: 66 Year
  Sex: Female

DRUGS (1)
  1. RELPAX [Suspect]
     Active Substance: ELETRIPTAN HYDROBROMIDE
     Indication: Migraine
     Dosage: 20 MG (PRESCRIBED 40 MG BUT TAKES 20MG A COUPLE OF TIMES A MONTH)
     Route: 048
     Dates: start: 2009

REACTIONS (3)
  - Weight increased [Unknown]
  - Expired product administered [Unknown]
  - Product dispensing issue [Unknown]
